FAERS Safety Report 4419896-2 (Version None)
Quarter: 2004Q3

REPORT INFORMATION
  Report Type: 
  Country: None (occurrence: None)
  Receive Date: 20040805
  Receipt Date: 20040805
  Transmission Date: 20050211
  Serious: Yes (Life-Threatening, Hospitalization)
  Sender: FDA-Public Use
  Company Number: None

PATIENT
  Age: 6 Year
  Sex: Male
  Weight: 24.8 kg

DRUGS (2)
  1. CEFZIL [Suspect]
     Indication: OTITIS MEDIA
     Dosage: 1.5 TSP BID ORAL
     Route: 048
     Dates: start: 20040722, end: 20040729
  2. CORTISPORIN [Suspect]
     Indication: OTITIS EXTERNA
     Dosage: 3 DROPS TID AURICULAR
     Route: 001
     Dates: start: 20040722, end: 20040730

REACTIONS (13)
  - ABDOMINAL PAIN [None]
  - DIFFICULTY IN WALKING [None]
  - DRUG HYPERSENSITIVITY [None]
  - EAR PAIN [None]
  - ERYTHEMA MULTIFORME [None]
  - EYELID OEDEMA [None]
  - PROTEIN URINE [None]
  - RESPIRATORY DISTRESS [None]
  - SERUM SICKNESS [None]
  - SKIN DISCOLOURATION [None]
  - STEVENS-JOHNSON SYNDROME [None]
  - STRIDOR [None]
  - THROAT TIGHTNESS [None]
